FAERS Safety Report 5397797-3 (Version None)
Quarter: 2007Q3

REPORT INFORMATION
  Report Type: 
  Country: None (occurrence: None)
  Receive Date: 20070723
  Receipt Date: 20070714
  Transmission Date: 20080115
  Serious: Yes (Other)
  Sender: FDA-Public Use
  Company Number: 2007SP011965

PATIENT
  Age: 43 Year
  Sex: Female
  Weight: 95.2554 kg

DRUGS (2)
  1. DESLORATADINE [Suspect]
     Indication: ARTHROPOD STING
     Dosage: 5 MG; ; PO
     Route: 048
     Dates: start: 20070612, end: 20070614
  2. DESLORATADINE [Suspect]
     Indication: HYPERSENSITIVITY
     Dosage: 5 MG; ; PO
     Route: 048
     Dates: start: 20070612, end: 20070614

REACTIONS (3)
  - ANAPHYLACTIC REACTION [None]
  - ASTHMA [None]
  - DYSPNOEA [None]
